FAERS Safety Report 6163937-1 (Version None)
Quarter: 2009Q2

REPORT INFORMATION
  Report Type: 
  Country: None (occurrence: None)
  Receive Date: 20090422
  Receipt Date: 20090421
  Transmission Date: 20091009
  Serious: Yes (Death, Other)
  Sender: FDA-Public Use
  Company Number: PHHY2009DE08361

PATIENT
  Sex: Female

DRUGS (1)
  1. ACLASTA [Suspect]
     Indication: OSTEOPOROSIS
     Dosage: 5 MG, UNK
     Route: 051
     Dates: start: 20090304, end: 20090304

REACTIONS (7)
  - ABDOMINAL PAIN UPPER [None]
  - ARRHYTHMIA [None]
  - CARDIAC ARREST [None]
  - CARDIAC DISORDER [None]
  - CARDIOVASCULAR INSUFFICIENCY [None]
  - DYSPNOEA [None]
  - TACHYCARDIA [None]
